FAERS Safety Report 8476921 (Version 3)
Quarter: 2012Q4

REPORT INFORMATION
  Report Type: 
  Country: US (occurrence: US)
  Receive Date: 20120326
  Receipt Date: 20121221
  Transmission Date: 20130627
  Serious: Yes (Disabling, Other)
  Sender: FDA-Public Use
  Company Number: US-US-EMD SERONO, INC.-7120690

PATIENT
  Sex: Female
  Weight: 50 kg

DRUGS (8)
  1. REBIF [Suspect]
     Indication: MULTIPLE SCLEROSIS
     Route: 058
     Dates: start: 200610
  2. REBIF [Suspect]
     Route: 058
     Dates: start: 20110715
  3. IRON PILL [Concomitant]
     Indication: SUPPLEMENTATION THERAPY
     Dates: start: 201106
  4. PRENATAL PILLS [Concomitant]
     Indication: SUPPLEMENTATION THERAPY
     Dates: start: 201106
  5. ANXIETY MEDICATION [Concomitant]
     Indication: PRODUCT USED FOR UNKNOWN INDICATION
  6. HYDROCODONE [Concomitant]
     Indication: PAIN
  7. LOTEMAX [Concomitant]
     Indication: PRODUCT USED FOR UNKNOWN INDICATION
     Route: 047
  8. ASPIRIN [Concomitant]
     Indication: PRODUCT USED FOR UNKNOWN INDICATION
     Dates: start: 201106

REACTIONS (5)
  - Systemic lupus erythematosus [Not Recovered/Not Resolved]
  - Cataract [Not Recovered/Not Resolved]
  - Pyrexia [Not Recovered/Not Resolved]
  - Pain [Not Recovered/Not Resolved]
  - Depression [Unknown]
